FAERS Safety Report 14489337 (Version 1)
Quarter: 2018Q1

REPORT INFORMATION
  Report Type: Spontaneous
  Country: US (occurrence: US)
  Receive Date: 20180205
  Receipt Date: 20180205
  Transmission Date: 20180509
  Serious: No
  Sender: FDA-Public Use
  Company Number: US-AMGEN-USASP2017029330

PATIENT
  Age: 60 Year
  Sex: Female

DRUGS (3)
  1. ADRIAMYCIN [Concomitant]
     Active Substance: DOXORUBICIN HYDROCHLORIDE
     Indication: BREAST CANCER
     Dosage: UNK UNK, CYCLICAL (ON DAY 1 EVERY OTHER WEEK FOR 4 CYCLES, THEN 12 CYCLES OF A DIFFERENT DRUG EVERY)
     Dates: start: 201702
  2. NEULASTA [Suspect]
     Active Substance: PEGFILGRASTIM
     Indication: PRODUCT USED FOR UNKNOWN INDICATION
     Dosage: UNK
     Route: 065
     Dates: start: 20170221
  3. CYTOXAN [Concomitant]
     Active Substance: CYCLOPHOSPHAMIDE
     Indication: BREAST CANCER
     Dosage: UNK, CYCLICAL (ON DAY 1 EVERY OTHER WEEK FOR 4 CYCLES, THEN 12 CYCLES OF A DIFFERENT DRUG EVERY WEE)
     Dates: start: 201702

REACTIONS (2)
  - Wrong technique in product usage process [Unknown]
  - Pain in jaw [Recovered/Resolved]

NARRATIVE: CASE EVENT DATE: 20170221
